FAERS Safety Report 12434264 (Version 5)
Quarter: 2017Q2

REPORT INFORMATION
  Report Type: Report from Study
  Country: US (occurrence: US)
  Receive Date: 20160603
  Receipt Date: 20170407
  Transmission Date: 20170830
  Serious: Yes (Death, Life-Threatening, Hospitalization, Other)
  Sender: FDA-Public Use
  Company Number: US-SA-2015SA110823

PATIENT
  Age: 35 Year
  Sex: Female

DRUGS (4)
  1. LEMTRADA [Suspect]
     Active Substance: ALEMTUZUMAB
     Indication: MULTIPLE SCLEROSIS
     Route: 041
     Dates: start: 20151102, end: 20151106
  2. ISONIAZID. [Concomitant]
     Active Substance: ISONIAZID
     Indication: MYCOBACTERIUM TUBERCULOSIS COMPLEX TEST POSITIVE
     Dates: start: 201510
  3. TRAMADOL. [Suspect]
     Active Substance: TRAMADOL
     Indication: TRIGEMINAL NEURALGIA
     Route: 065
  4. CYMBALTA [Suspect]
     Active Substance: DULOXETINE HYDROCHLORIDE
     Indication: TRIGEMINAL NEURALGIA
     Route: 065

REACTIONS (21)
  - Loss of consciousness [Unknown]
  - Coma [Unknown]
  - Trigeminal neuralgia [Unknown]
  - Fatigue [Not Recovered/Not Resolved]
  - Neck pain [Not Recovered/Not Resolved]
  - Pyrexia [Unknown]
  - Movement disorder [Not Recovered/Not Resolved]
  - Condition aggravated [Not Recovered/Not Resolved]
  - Condition aggravated [Unknown]
  - Feeling abnormal [Not Recovered/Not Resolved]
  - Multiple organ dysfunction syndrome [Unknown]
  - Dizziness [Not Recovered/Not Resolved]
  - Death [Fatal]
  - White blood cell count abnormal [Unknown]
  - CD4 lymphocytes abnormal [Unknown]
  - X-ray abnormal [Unknown]
  - Gait disturbance [Unknown]
  - Fall [Unknown]
  - Heat stroke [Unknown]
  - Serotonin syndrome [Unknown]
  - Visual impairment [Not Recovered/Not Resolved]

NARRATIVE: CASE EVENT DATE: 2015
